FAERS Safety Report 7218377-0 (Version None)
Quarter: 2011Q1

REPORT INFORMATION
  Report Type: 
  Country: None (occurrence: None)
  Receive Date: 20110110
  Receipt Date: 20110105
  Transmission Date: 20110831
  Serious: Yes (Life-Threatening)
  Sender: FDA-Public Use
  Company Number: DE-PFIZER INC-2011002175

PATIENT
  Age: 27 Year
  Sex: Female
  Weight: 63 kg

DRUGS (10)
  1. PREDNISOLONE [Interacting]
     Indication: HODGKIN'S DISEASE
     Dosage: 70 MG, 1X/DAY
     Route: 048
     Dates: start: 20100913, end: 20100920
  2. COTRIM E ^RATIOPHARM^ [Concomitant]
     Dosage: 1 DF, 3X/WEEK
  3. ADRIAMYCIN PFS [Interacting]
     Indication: HODGKIN'S DISEASE
     Dosage: 60 MG, 1X/DAY
     Route: 042
     Dates: start: 20100913
  4. CYCLOPHOSPHAMIDE [Interacting]
     Indication: HODGKIN'S DISEASE
     Dosage: 1870 MG, 1X/DAY
     Route: 042
     Dates: start: 20100913
  5. ETOPOSIDE [Interacting]
     Indication: HODGKIN'S DISEASE
     Dosage: 300 MG, 1X/DAY
     Dates: start: 20100913, end: 20100915
  6. ACICLOVIR [Concomitant]
     Dosage: 400 MG, 3X/DAY
  7. PARACETAMOL [Concomitant]
     Dosage: 1 G, 1X/DAY
     Dates: start: 20100914
  8. VFEND [Suspect]
     Indication: BRONCHOPULMONARY ASPERGILLOSIS
     Dosage: 200 MG, 2X/DAY
     Route: 048
     Dates: start: 20100813, end: 20100920
  9. RITUXIMAB [Concomitant]
     Dosage: 637 MG, 1X/DAY
     Dates: start: 20100914
  10. FENISTIL [Concomitant]
     Dosage: 1 DF, 1X/DAY
     Dates: start: 20100914

REACTIONS (4)
  - PERSONALITY CHANGE [None]
  - HALLUCINATION [None]
  - ACUTE PSYCHOSIS [None]
  - DRUG INTERACTION [None]
